FAERS Safety Report 4528780-5 (Version None)
Quarter: 2004Q4

REPORT INFORMATION
  Report Type: 
  Country: None (occurrence: None)
  Receive Date: 20041216
  Receipt Date: 20041210
  Transmission Date: 20050328
  Serious: Yes (Death)
  Sender: FDA-Public Use
  Company Number: US-ROCHE-388906

PATIENT
  Age: 71 Year
  Sex: Female
  Weight: 90 kg

DRUGS (6)
  1. CAPECITABINE [Suspect]
     Route: 048
     Dates: start: 20040922, end: 20041116
  2. BEVACIZUMAB [Suspect]
     Route: 042
     Dates: start: 20040922, end: 20041110
  3. GEMCITABINE [Suspect]
     Route: 042
     Dates: start: 20040922, end: 20041110
  4. LOVENOX [Concomitant]
     Dates: start: 20040916
  5. COUMADIN [Concomitant]
     Dates: start: 20040916, end: 20041006
  6. VITAMIN K [Concomitant]
     Dates: start: 20041006, end: 20041006

REACTIONS (3)
  - ASPIRATION [None]
  - GASTROINTESTINAL ULCER HAEMORRHAGE [None]
  - INTERNATIONAL NORMALISED RATIO INCREASED [None]
